FAERS Safety Report 9397021 (Version 1)
Quarter: 2013Q3

REPORT INFORMATION
  Report Type: Spontaneous
  Country: US (occurrence: None)
  Receive Date: 20130711
  Receipt Date: 20130711
  Transmission Date: 20140515
  Serious: No
  Sender: FDA-Public Use
  Company Number: None

PATIENT
  Age: 4 None
  Sex: Female
  Weight: 16.33 kg

DRUGS (1)
  1. EAGLE BRAND MEDICATED OIL [Suspect]
     Dosage: 30 % METHYL SALICYLIC 14.5% MENTHOL 3-4 TIMES DAILY ON SKIN

REACTIONS (1)
  - Drug dispensing error [None]
